FAERS Safety Report 16549550 (Version 1)
Quarter: 2019Q3

REPORT INFORMATION
  Report Type: Spontaneous
  Country: US (occurrence: US)
  Receive Date: 20190710
  Receipt Date: 20190710
  Transmission Date: 20191004
  Serious: Yes (Hospitalization, Other)
  Sender: FDA-Public Use
  Company Number: US-009507513-1907USA003229

PATIENT
  Age: 56 Year
  Sex: Female

DRUGS (2)
  1. ZERBAXA [Suspect]
     Active Substance: CEFTOLOZANE SULFATE\TAZOBACTAM SODIUM
     Indication: CELLULITIS
     Dosage: 3 G EVERY 8 HOURS
     Route: 042
     Dates: end: 201907
  2. ZERBAXA [Suspect]
     Active Substance: CEFTOLOZANE SULFATE\TAZOBACTAM SODIUM
     Indication: ABSCESS
     Dosage: 3 G EVERY 8 HOURS
     Route: 042
     Dates: start: 201907

REACTIONS (7)
  - Fungal infection [Recovering/Resolving]
  - Product dose omission [Unknown]
  - Postoperative wound infection [Recovering/Resolving]
  - Product use in unapproved indication [Unknown]
  - Incision site cellulitis [Recovering/Resolving]
  - Adverse event [Recovering/Resolving]
  - Pseudomonas test positive [Recovering/Resolving]

NARRATIVE: CASE EVENT DATE: 201907
